FAERS Safety Report 4421401-1 (Version None)
Quarter: 2004Q3

REPORT INFORMATION
  Report Type: 
  Country: None (occurrence: None)
  Receive Date: 20040719
  Receipt Date: 20040122
  Transmission Date: 20050211
  Serious: Yes (Other)
  Sender: FDA-Public Use
  Company Number: A03200400188

PATIENT
  Sex: Male

DRUGS (1)
  1. UROXATRAL - ALFUZOSIN HYDROCHLORIDE - TABLET - 10 MG [Suspect]
     Indication: BENIGN PROSTATIC HYPERPLASIA
     Dosage: 10 MG OD - ORAL
     Route: 048
     Dates: start: 20040101, end: 20040101

REACTIONS (5)
  - DIZZINESS [None]
  - LOSS OF CONSCIOUSNESS [None]
  - NAUSEA [None]
  - ORTHOSTATIC HYPOTENSION [None]
  - TACHYCARDIA [None]
